FAERS Safety Report 4410027-1 (Version None)
Quarter: 2004Q3

REPORT INFORMATION
  Report Type: 
  Country: None (occurrence: None)
  Receive Date: 20040726
  Receipt Date: 20040715
  Transmission Date: 20050211
  Serious: No
  Sender: FDA-Public Use
  Company Number: 04H-062-0253155-00

PATIENT
  Age: 27 Year
  Sex: Female

DRUGS (2)
  1. HEPARIN SODIUM [Suspect]
     Indication: OBESITY
     Dosage: SUBCUTANEOUS
     Route: 058
  2. HEPARIN SODIUM [Suspect]
     Indication: THROMBOSIS PROPHYLAXIS
     Dosage: SUBCUTANEOUS
     Route: 058

REACTIONS (7)
  - CEREBRAL INFARCTION [None]
  - HEMIPARESIS [None]
  - HEPARIN-INDUCED THROMBOCYTOPENIA [None]
  - LERICHE SYNDROME [None]
  - MONOPARESIS [None]
  - PARAPARESIS [None]
  - PULMONARY EMBOLISM [None]
